FAERS Safety Report 7086158-7 (Version None)
Quarter: 2010Q4

REPORT INFORMATION
  Report Type: 
  Country: None (occurrence: None)
  Receive Date: 20101028
  Receipt Date: 20101014
  Transmission Date: 20110411
  Serious: Yes (Other)
  Sender: FDA-Public Use
  Company Number: IDA-00445

PATIENT
  Age: 54 Year
  Sex: Female

DRUGS (3)
  1. PROPRANOLOL [Suspect]
     Indication: SUPRAVENTRICULAR TACHYCARDIA
     Dosage: 20 MG TID ORAL / 20 MG BID ORAL
     Route: 048
  2. PEGINTERFERON ALFA-2A [Concomitant]
  3. RIBAVIRIN [Concomitant]

REACTIONS (5)
  - ALANINE AMINOTRANSFERASE INCREASED [None]
  - ANGIOEDEMA [None]
  - ASPARTATE AMINOTRANSFERASE INCREASED [None]
  - SUPRAVENTRICULAR TACHYCARDIA [None]
  - TREATMENT FAILURE [None]
